FAERS Safety Report 7388201-4 (Version None)
Quarter: 2011Q1

REPORT INFORMATION
  Report Type: 
  Country: None (occurrence: None)
  Receive Date: 20110324
  Receipt Date: 20110315
  Transmission Date: 20110831
  Serious: Yes (Hospitalization)
  Sender: FDA-Public Use
  Company Number: 028096

PATIENT
  Sex: Male
  Weight: 55 kg

DRUGS (9)
  1. KEPPRA [Suspect]
     Indication: EPILEPSY
     Dosage: (500 MG BID ORAL)
     Route: 048
     Dates: start: 20110210, end: 20110221
  2. URSO /00465701/ [Concomitant]
  3. AMBISOME [Concomitant]
  4. SELBEX [Concomitant]
  5. GASMOTIN [Concomitant]
  6. PREDONINE [Concomitant]
  7. BISOLVON /00004702/ [Concomitant]
  8. PHENYTOIN [Suspect]
     Indication: EPILEPSY
     Dosage: (100 MG BID ORAL)
     Route: 048
     Dates: start: 20110129, end: 20110223
  9. GASTER /00706001/ [Concomitant]

REACTIONS (13)
  - PROTEIN TOTAL DECREASED [None]
  - BLOOD LACTATE DEHYDROGENASE INCREASED [None]
  - BLOOD POTASSIUM DECREASED [None]
  - ASPARTATE AMINOTRANSFERASE INCREASED [None]
  - BLOOD URIC ACID DECREASED [None]
  - BODY TEMPERATURE INCREASED [None]
  - GAMMA-GLUTAMYLTRANSFERASE INCREASED [None]
  - BLOOD GLUCOSE INCREASED [None]
  - DRUG ERUPTION [None]
  - PANCYTOPENIA [None]
  - LYMPHOCYTE STIMULATION TEST POSITIVE [None]
  - BLOOD BILIRUBIN INCREASED [None]
  - ALANINE AMINOTRANSFERASE INCREASED [None]
